FAERS Safety Report 10028525 (Version 1)
Quarter: 2014Q1

REPORT INFORMATION
  Report Type: Spontaneous
  Country: US (occurrence: US)
  Receive Date: 20140321
  Receipt Date: 20140321
  Transmission Date: 20141002
  Serious: No
  Sender: FDA-Public Use
  Company Number: US-PFIZER INC-2014082103

PATIENT
  Age: 47 Year
  Sex: Female

DRUGS (2)
  1. EFFEXOR [Suspect]
     Dosage: 50 MG, UNK
     Route: 048
  2. OMEPRAZOLE [Concomitant]
     Dosage: UNK

REACTIONS (1)
  - Nervous system disorder [Unknown]
